FAERS Safety Report 12105324 (Version 2)
Quarter: 2016Q2

REPORT INFORMATION
  Report Type: Spontaneous
  Country: US (occurrence: US)
  Receive Date: 20160223
  Receipt Date: 20160506
  Transmission Date: 20160815
  Serious: No
  Sender: FDA-Public Use
  Company Number: US-PFIZER INC-2016056925

PATIENT
  Age: 50 Year
  Sex: Female
  Weight: 86 kg

DRUGS (3)
  1. PREMPRO [Suspect]
     Active Substance: ESTROGENS, CONJUGATED\MEDROXYPROGESTERONE ACETATE
     Indication: HOT FLUSH
     Dosage: UNK
     Dates: start: 2015
  2. BISOPROLOL [Concomitant]
     Active Substance: BISOPROLOL
     Indication: HEART RATE ABNORMAL
     Dosage: 5 MG, 1X/DAY
     Dates: start: 2015
  3. LOSARTAN. [Concomitant]
     Active Substance: LOSARTAN
     Indication: BLOOD PRESSURE ABNORMAL
     Dosage: 50 MG, DAILY
     Dates: start: 2014

REACTIONS (3)
  - Nasopharyngitis [Recovered/Resolved]
  - Influenza [Recovered/Resolved]
  - Product use issue [Unknown]

NARRATIVE: CASE EVENT DATE: 2015
